FAERS Safety Report 8056660-X (Version None)
Quarter: 2012Q1

REPORT INFORMATION
  Report Type: 
  Country: None (occurrence: None)
  Receive Date: 20120119
  Receipt Date: 20120110
  Transmission Date: 20120608
  Serious: No
  Sender: FDA-Public Use
  Company Number: US-BAYER-2012-004135

PATIENT
  Age: 67 Year
  Sex: Female
  Weight: 84 kg

DRUGS (9)
  1. ARIPIPRAZOLE [Concomitant]
  2. ESTRADERM [Concomitant]
  3. ESOMEPRAZOLE MAGNESIUM [Concomitant]
  4. COLECALCIFEROL [Concomitant]
  5. MULTI-VITAMINS [Concomitant]
  6. ASPIRIN [Suspect]
     Indication: ANALGESIC THERAPY
     Dosage: 325 MG, UNK
     Route: 048
     Dates: start: 20110601, end: 20111108
  7. LEVOTHYROXINE SODIUM [Concomitant]
  8. CALCIUM [Concomitant]
  9. ALEVE (CAPLET) [Suspect]
     Indication: ANALGESIC THERAPY
     Dosage: 220 MG, UNK
     Dates: start: 20111231, end: 20111231

REACTIONS (2)
  - ASTHMA [None]
  - WHEEZING [None]
